FAERS Safety Report 17629357 (Version 2)
Quarter: 2020Q2

REPORT INFORMATION
  Report Type: Spontaneous
  Country: JP (occurrence: JP)
  Receive Date: 20200406
  Receipt Date: 20200409
  Transmission Date: 20200713
  Serious: No
  Sender: FDA-Public Use
  Company Number: JP-ASTELLAS-2020JP005704

PATIENT
  Age: 87 Year
  Sex: Male

DRUGS (1)
  1. BETANIS [Suspect]
     Active Substance: MIRABEGRON
     Indication: PRODUCT USED FOR UNKNOWN INDICATION
     Dosage: 50 MG/DAY, UNKNOWN FREQ.
     Route: 048

REACTIONS (3)
  - Wrong technique in product usage process [Unknown]
  - Cognitive disorder [Unknown]
  - Drug ineffective [Unknown]
